FAERS Safety Report 9270277 (Version 2)
Quarter: 2013Q2

REPORT INFORMATION
  Report Type: Spontaneous
  Country: JP (occurrence: JP)
  Receive Date: 20130503
  Receipt Date: 20130522
  Transmission Date: 20140414
  Serious: Yes (Hospitalization, Other)
  Sender: FDA-Public Use
  Company Number: JP-UCBSA-084904

PATIENT
  Age: 10 Year
  Sex: Female

DRUGS (9)
  1. XYZAL [Suspect]
     Indication: HYPERSENSITIVITY
     Route: 048
     Dates: start: 20130411, end: 20130417
  2. XYZAL [Suspect]
     Indication: RHINITIS
     Route: 048
     Dates: start: 20130411, end: 20130417
  3. ASTOMIN [Concomitant]
     Indication: ASTHMA
     Route: 048
     Dates: start: 20130411, end: 20130417
  4. ASTOMIN [Concomitant]
     Indication: COUGH
     Route: 048
     Dates: start: 20130411, end: 20130417
  5. MUCODYNE [Concomitant]
     Indication: ASTHMA
     Route: 048
  6. GENOTROPIN GOQUICK [Concomitant]
     Indication: BODY HEIGHT BELOW NORMAL
     Dosage: UNKNOWN DOSE
     Dates: start: 2008
  7. MEPTIN [Concomitant]
     Indication: COUGH
     Route: 048
     Dates: start: 20130411, end: 20130417
  8. MUCOSOLVAN [Concomitant]
     Indication: COUGH
     Route: 048
     Dates: start: 20130411, end: 20130417
  9. DECADRON [Concomitant]
     Indication: COUGH
     Dosage: DOSE: 0.5 MG
     Route: 048
     Dates: start: 20130411, end: 20130415

REACTIONS (5)
  - Dizziness [Recovered/Resolved]
  - Cerebellar ataxia [Recovered/Resolved]
  - Muscular weakness [Recovered/Resolved]
  - Gait disturbance [Recovered/Resolved]
  - Asterixis [Recovered/Resolved]
